FAERS Safety Report 6017504-0 (Version None)
Quarter: 2008Q4

REPORT INFORMATION
  Report Type: 
  Country: None (occurrence: None)
  Receive Date: 20081223
  Receipt Date: 20080714
  Transmission Date: 20090506
  Serious: No
  Sender: FDA-Public Use
  Company Number: US-BRISTOL-MYERS SQUIBB COMPANY-14226609

PATIENT
  Age: 78 Year
  Sex: Male
  Weight: 85 kg

DRUGS (3)
  1. CARDIOLITE [Suspect]
     Indication: CARDIAC STRESS TEST
     Dates: start: 20080606
  2. HYDROCHLOROTHIAZIDE [Concomitant]
  3. BLOOD PRESSURE PILL [Concomitant]

REACTIONS (1)
  - PETECHIAE [None]
